FAERS Safety Report 16384797 (Version 1)
Quarter: 2019Q2

REPORT INFORMATION
  Report Type: Spontaneous
  Country: PL (occurrence: PL)
  Receive Date: 20190603
  Receipt Date: 20190603
  Transmission Date: 20190711
  Serious: Yes (Death, Life-Threatening, Other)
  Sender: FDA-Public Use
  Company Number: PL-JNJFOC-20190529688

PATIENT

DRUGS (2)
  1. ACETAMINOPHEN. [Suspect]
     Active Substance: ACETAMINOPHEN
     Route: 065
  2. ACETAMINOPHEN. [Suspect]
     Active Substance: ACETAMINOPHEN
     Indication: PRODUCT USED FOR UNKNOWN INDICATION
     Route: 065

REACTIONS (33)
  - Toxic epidermal necrolysis [Unknown]
  - Drug reaction with eosinophilia and systemic symptoms [Fatal]
  - Rash [Unknown]
  - Eye swelling [Unknown]
  - Face oedema [Fatal]
  - Blister [Fatal]
  - Hepatic failure [Fatal]
  - Methaemoglobinaemia [Fatal]
  - Shock [Fatal]
  - Angioedema [Fatal]
  - Orbital oedema [Fatal]
  - Anaphylactic shock [Fatal]
  - Rash generalised [Unknown]
  - Rash maculo-papular [Fatal]
  - Localised oedema [Fatal]
  - Hypersensitivity [Fatal]
  - Anaphylactic reaction [Unknown]
  - Oedema [Fatal]
  - Overdose [Fatal]
  - Respiratory tract oedema [Fatal]
  - Urticaria [Fatal]
  - Respiratory symptom [Fatal]
  - Respiratory distress [Unknown]
  - Periorbital oedema [Fatal]
  - Cough [Fatal]
  - Erythema [Unknown]
  - Stevens-Johnson syndrome [Fatal]
  - Fixed eruption [Fatal]
  - Lip swelling [Fatal]
  - Swelling face [Fatal]
  - Rash erythematous [Fatal]
  - Coagulopathy [Fatal]
  - Acute generalised exanthematous pustulosis [Unknown]
